FAERS Safety Report 11107817 (Version 3)
Quarter: 2015Q2

REPORT INFORMATION
  Report Type: Report from Study
  Country: IT (occurrence: IT)
  Receive Date: 20150512
  Receipt Date: 20150616
  Transmission Date: 20150821
  Serious: Yes (Hospitalization)
  Sender: FDA-Public Use
  Company Number: PHHO2015IT008258

PATIENT

DRUGS (2)
  1. CERTICAN [Suspect]
     Active Substance: EVEROLIMUS
     Indication: HEART TRANSPLANT
     Dosage: UNK
     Route: 048
  2. SANDIMMUNE [Suspect]
     Active Substance: CYCLOSPORINE
     Indication: HEART TRANSPLANT
     Dosage: UNK
     Route: 048

REACTIONS (2)
  - Pericardial effusion [Unknown]
  - Pleural effusion [Unknown]

NARRATIVE: CASE EVENT DATE: 20120903
